FAERS Safety Report 12184469 (Version 1)
Quarter: 2016Q1

REPORT INFORMATION
  Report Type: Spontaneous
  Country: US (occurrence: US)
  Receive Date: 20160316
  Receipt Date: 20160316
  Transmission Date: 20160526
  Serious: Yes (Other)
  Sender: FDA-Public Use
  Company Number: US-PFIZER INC-2016152659

PATIENT
  Age: 25 Year
  Sex: Male

DRUGS (15)
  1. AMMONIUM CHLORIDE. [Concomitant]
     Active Substance: AMMONIUM CHLORIDE
     Indication: RHEUMATIC FEVER
  2. PENICILLIN /00000901/ [Concomitant]
     Active Substance: PENICILLIN G
     Indication: RHEUMATIC FEVER
  3. THEOBROMINE [Concomitant]
     Active Substance: THEOBROMINE
     Indication: RHEUMATIC FEVER
  4. PENICILLIN /00000901/ [Concomitant]
     Active Substance: PENICILLIN G
     Indication: RHEUMATIC HEART DISEASE
  5. THEOBROMINE [Concomitant]
     Active Substance: THEOBROMINE
     Indication: RHEUMATIC HEART DISEASE
  6. PENICILLIN /00000901/ [Concomitant]
     Active Substance: PENICILLIN G
     Indication: CARDIAC FAILURE CONGESTIVE
  7. AMMONIUM CHLORIDE. [Concomitant]
     Active Substance: AMMONIUM CHLORIDE
     Indication: RHEUMATIC HEART DISEASE
  8. SALICYLATE SODIUM [Concomitant]
     Active Substance: SODIUM SALICYLATE
     Indication: RHEUMATIC FEVER
  9. CORTISONE ACETATE. [Suspect]
     Active Substance: CORTISONE ACETATE
     Indication: RHEUMATIC FEVER
     Dosage: (DOSAGE RANGING FROM 25 TO 300 MG), DAILY
  10. CORTISONE ACETATE. [Suspect]
     Active Substance: CORTISONE ACETATE
     Indication: CARDIAC FAILURE CONGESTIVE
  11. AMMONIUM CHLORIDE. [Concomitant]
     Active Substance: AMMONIUM CHLORIDE
     Indication: CARDIAC FAILURE CONGESTIVE
  12. THEOBROMINE [Concomitant]
     Active Substance: THEOBROMINE
     Indication: CARDIAC FAILURE CONGESTIVE
  13. SALICYLATE SODIUM [Concomitant]
     Active Substance: SODIUM SALICYLATE
     Indication: RHEUMATIC HEART DISEASE
  14. CORTISONE ACETATE. [Suspect]
     Active Substance: CORTISONE ACETATE
     Indication: RHEUMATIC HEART DISEASE
  15. SALICYLATE SODIUM [Concomitant]
     Active Substance: SODIUM SALICYLATE
     Indication: CARDIAC FAILURE CONGESTIVE

REACTIONS (2)
  - Hallucination [Recovered/Resolved]
  - Mental disorder [Recovered/Resolved]
